FAERS Safety Report 19851723 (Version 1)
Quarter: 2021Q3

REPORT INFORMATION
  Report Type: Spontaneous
  Country: CN (occurrence: CN)
  Receive Date: 20210917
  Receipt Date: 20210917
  Transmission Date: 20211014
  Serious: Yes (Hospitalization)
  Sender: FDA-Public Use
  Company Number: CN-BAXTER-2021BAX024386

PATIENT
  Age: 68 Year
  Sex: Female
  Weight: 61.7 kg

DRUGS (6)
  1. 0.9% SODIUM CHLORIDE INJECTION [Suspect]
     Active Substance: SODIUM CHLORIDE
     Dosage: HERCEPTIN 370 MG + 0.9% SODIUM CHLORIDE 250ML
     Route: 041
     Dates: start: 20201101, end: 20201101
  2. ENDOXAN [Suspect]
     Active Substance: CYCLOPHOSPHAMIDE
     Indication: BREAST CANCER
     Dosage: CYCLOPHOSPHAMIDE INJECTION 1G + 0.9% SODIUM CHLORIDE INJECTION 50ML
     Route: 041
     Dates: start: 20201102, end: 20201102
  3. HERCEPTIN [Suspect]
     Active Substance: TRASTUZUMAB
     Indication: BREAST CANCER
     Dosage: HERCEPTIN 370 MG + 0.9% SODIUM CHLORIDE 250ML
     Route: 041
     Dates: start: 20201101, end: 20201101
  4. 0.9% SODIUM CHLORIDE INJECTION [Suspect]
     Active Substance: SODIUM CHLORIDE
     Indication: MEDICATION DILUTION
     Dosage: CYCLOPHOSPHAMIDE INJECTION 1G + 0.9% SODIUM CHLORIDE INJECTION 50ML
     Route: 041
     Dates: start: 20201102, end: 20201102
  5. AISU [Suspect]
     Active Substance: DOCETAXEL
     Indication: BREAST CANCER
     Dosage: DOCETAXEL 120 MG + 0.9% SODIUM CHLORIDE 250 ML
     Route: 041
     Dates: start: 20201102, end: 20201102
  6. 0.9% SODIUM CHLORIDE INJECTION [Suspect]
     Active Substance: SODIUM CHLORIDE
     Dosage: DOCETAXEL 120 MG + 0.9% SODIUM CHLORIDE 250 ML
     Route: 041
     Dates: start: 20201102, end: 20201102

REACTIONS (4)
  - Decreased appetite [Unknown]
  - Infection [Recovered/Resolved]
  - Nausea [Unknown]
  - Abdominal pain [Recovered/Resolved]

NARRATIVE: CASE EVENT DATE: 20201107
